FAERS Safety Report 7201033-2 (Version None)
Quarter: 2010Q4

REPORT INFORMATION
  Report Type: 
  Country: None (occurrence: None)
  Receive Date: 20101229
  Receipt Date: 20100412
  Transmission Date: 20110411
  Serious: Yes (Death)
  Sender: FDA-Public Use
  Company Number: US-ASTRAZENECA-2009UW19299

PATIENT
  Age: 16051 Day
  Sex: Female

DRUGS (4)
  1. SEROQUEL [Suspect]
     Indication: SLEEP DISORDER
     Dosage: 50 TO 100 MG PO HS PRN
     Route: 048
     Dates: start: 20060818
  2. BISOPROLOL FUMARATE AND HYDROCHLOROTHIAZIDE [Concomitant]
     Indication: HYPERTENSION
     Dosage: 5/6.25 MG 2 IN THE MORNING
     Dates: start: 20060818
  3. TRAZODONE [Concomitant]
     Indication: SLEEP DISORDER
     Dosage: 100 MG/ 2 Q HS
     Dates: start: 20060711
  4. EFFEXOR XR [Concomitant]
     Dosage: 75 MG / 5 Q AM
     Dates: start: 20051207

REACTIONS (4)
  - BACTERAEMIA [None]
  - DIABETES MELLITUS [None]
  - MULTI-ORGAN FAILURE [None]
  - PNEUMONIA STAPHYLOCOCCAL [None]
